FAERS Safety Report 8557296-4 (Version None)
Quarter: 2012Q3

REPORT INFORMATION
  Report Type: 
  Country: None (occurrence: None)
  Receive Date: 20120720
  Receipt Date: 20120712
  Transmission Date: 20120928
  Serious: Yes (Hospitalization)
  Sender: FDA-Public Use
  Company Number: TIR-01204

PATIENT
  Age: 57 Year
  Sex: Female

DRUGS (8)
  1. FUROSEMIDE [Concomitant]
  2. UNSPECIFIED VITAMINS [Concomitant]
  3. XANAX [Concomitant]
  4. TIROSINT [Suspect]
     Indication: HYPOTHYROIDISM
     Dosage: 100MCG CAPSULE NIGHTLY, ORAL
     Route: 048
     Dates: start: 20120626, end: 20120630
  5. TIROSINT [Suspect]
     Indication: BASEDOW'S DISEASE
     Dosage: 100MCG CAPSULE NIGHTLY, ORAL
     Route: 048
     Dates: start: 20120626, end: 20120630
  6. TIROSINT [Suspect]
     Indication: RADIOACTIVE IODINE THERAPY
     Dosage: 100MCG CAPSULE NIGHTLY, ORAL
     Route: 048
     Dates: start: 20120626, end: 20120630
  7. UNSPECIFIED EYE DROPS [Concomitant]
  8. LYRICA [Concomitant]

REACTIONS (6)
  - ASTHENIA [None]
  - HEART RATE INCREASED [None]
  - ATRIAL FIBRILLATION [None]
  - CHEST PAIN [None]
  - MALAISE [None]
  - POLYMEDICATION [None]
